FAERS Safety Report 9534936 (Version 3)
Quarter: 2013Q4

REPORT INFORMATION
  Report Type: Spontaneous
  Country: IT (occurrence: IT)
  Receive Date: 20130918
  Receipt Date: 20131112
  Transmission Date: 20140711
  Serious: Yes (Hospitalization)
  Sender: FDA-Public Use
  Company Number: PHHY2013IT100588

PATIENT
  Sex: Female

DRUGS (5)
  1. METHOTREXATE [Suspect]
     Indication: RHEUMATOID ARTHRITIS
     Dosage: 7.5 MG, QW
     Route: 048
     Dates: start: 20050101, end: 20121016
  2. RITUXIMAB [Suspect]
     Indication: RHEUMATOID ARTHRITIS
     Dosage: 500 MG, QD
     Route: 042
     Dates: start: 20080101
  3. FOLINA [Concomitant]
     Indication: RHEUMATOID ARTHRITIS
     Dosage: 5 MG, UNK
     Dates: start: 20050101, end: 20121016
  4. PANTOPAN [Concomitant]
     Dosage: 20 MG, UNK
  5. MOBIC [Concomitant]
     Dosage: 15 MG, UNK

REACTIONS (2)
  - Trisomy 18 [Recovered/Resolved]
  - Maternal exposure during pregnancy [Recovered/Resolved]
